FAERS Safety Report 20070692 (Version 1)
Quarter: 2021Q4

REPORT INFORMATION
  Report Type: Spontaneous
  Country: US (occurrence: None)
  Receive Date: 20211115
  Receipt Date: 20211115
  Transmission Date: 20220303
  Serious: Yes (Hospitalization)
  Sender: FDA-Public Use
  Company Number: None

PATIENT
  Age: 63 Year
  Sex: Male
  Weight: 119.3 kg

DRUGS (13)
  1. CASIRIVIMAB\IMDEVIMAB [Suspect]
     Active Substance: CASIRIVIMAB\IMDEVIMAB
     Indication: COVID-19
     Dosage: FREQUENCY : ONCE;?
     Route: 042
  2. Acyclovir [Concomitant]
     Dates: start: 20211108
  3. ATORVASTATIN [Concomitant]
     Active Substance: ATORVASTATIN
  4. MELOXICAM [Concomitant]
  5. DULAGLUTIDE [Concomitant]
     Active Substance: DULAGLUTIDE
  6. ERGOCALCIFEROL [Concomitant]
     Active Substance: ERGOCALCIFEROL
  7. ESCITALOPRAM [Concomitant]
  8. Ezetemibe [Concomitant]
  9. FAMOTIDINE [Concomitant]
  10. LOSARTAN [Concomitant]
  11. METFORMIN [Concomitant]
  12. OMEPRAZOLE [Concomitant]
     Active Substance: OMEPRAZOLE
  13. TESTOSTERONE CYPIONATE [Concomitant]
     Active Substance: TESTOSTERONE CYPIONATE

REACTIONS (12)
  - Infusion related reaction [None]
  - Dyspnoea [None]
  - Chest pain [None]
  - Pain in jaw [None]
  - Head discomfort [None]
  - Dizziness [None]
  - Nausea [None]
  - Feeling hot [None]
  - Vomiting [None]
  - Respiratory rate increased [None]
  - Bundle branch block left [None]
  - Electrocardiogram abnormal [None]

NARRATIVE: CASE EVENT DATE: 20211112
